FAERS Safety Report 6574003-5 (Version None)
Quarter: 2010Q1

REPORT INFORMATION
  Report Type: 
  Country: None (occurrence: None)
  Receive Date: 20100204
  Receipt Date: 20100204
  Transmission Date: 20100710
  Serious: Yes (Hospitalization)
  Sender: FDA-Public Use
  Company Number: None

PATIENT
  Sex: Female
  Weight: 92 kg

DRUGS (2)
  1. CISPLATIN [Suspect]
     Dosage: 120 MG
  2. ETOPOSIDE [Suspect]
     Dosage: 450 MG

REACTIONS (11)
  - ABDOMINAL PAIN [None]
  - BACTERIAL INFECTION [None]
  - BLOOD CULTURE POSITIVE [None]
  - COUGH [None]
  - CULTURE URINE POSITIVE [None]
  - DYSPHAGIA [None]
  - GASTROINTESTINAL ULCER [None]
  - ODYNOPHAGIA [None]
  - OESOPHAGEAL STENOSIS [None]
  - OESOPHAGITIS [None]
  - PNEUMONIA [None]
